FAERS Safety Report 5564046-2 (Version None)
Quarter: 2007Q4

REPORT INFORMATION
  Report Type: 
  Country: None (occurrence: None)
  Receive Date: 20071217
  Receipt Date: 20071212
  Transmission Date: 20080405
  Serious: Yes (Life-Threatening)
  Sender: FDA-Public Use
  Company Number: DE-BOEHRINGER INGELHEIM PHARMACEUTICALS, INC.-2006-DE-04625DE

PATIENT
  Sex: Male
  Weight: 102 kg

DRUGS (12)
  1. ALNA OCAS [Suspect]
     Indication: MICTURITION DISORDER
     Route: 048
  2. VOLTAREN [Concomitant]
     Indication: FIBROMYALGIA
     Dosage: 25 MG UP TO 50 MG
  3. VOLTAREN [Concomitant]
     Indication: INTERVERTEBRAL DISC DISORDER
  4. SOGOON [Concomitant]
     Indication: DYSPEPSIA
     Route: 048
  5. SOGOON [Concomitant]
     Indication: INTERVERTEBRAL DISC DISORDER
  6. MYRRHINIL [Concomitant]
  7. SALVYSAT [Concomitant]
  8. DICLAC [Concomitant]
  9. ENZYM-LEFAX [Concomitant]
     Indication: DYSPEPSIA
     Route: 048
  10. ENZYM-LEFAX [Concomitant]
     Indication: PANCREATIC INSUFFICIENCY
  11. ENZYM-LEFAX [Concomitant]
     Indication: FLATULENCE
  12. BICANORM [Concomitant]

REACTIONS (3)
  - BRONCHIAL OBSTRUCTION [None]
  - DYSPNOEA [None]
  - NASAL CONGESTION [None]
